FAERS Safety Report 8089432-0 (Version None)
Quarter: 2012Q1

REPORT INFORMATION
  Report Type: 
  Country: None (occurrence: None)
  Receive Date: 20120128
  Receipt Date: 20110627
  Transmission Date: 20120608
  Serious: No
  Sender: FDA-Public Use
  Company Number: US-ABBOTT-11P-163-0834819-00

PATIENT
  Age: 59 Year
  Sex: Male

DRUGS (12)
  1. LOVAZA [Concomitant]
     Indication: SUPPLEMENTATION THERAPY
  2. MSN [Concomitant]
     Indication: SUPPLEMENTATION THERAPY
  3. VITAMIN E [Concomitant]
     Indication: SUPPLEMENTATION THERAPY
     Route: 048
  4. NAPROXEN (ALEVE) [Concomitant]
     Indication: HEADACHE
  5. HUMIRA [Suspect]
     Indication: PSORIATIC ARTHROPATHY
     Dates: start: 20100801, end: 20110401
  6. ASCORBIC ACID [Concomitant]
     Indication: SUPPLEMENTATION THERAPY
     Route: 048
  7. WATER DRUG [Concomitant]
     Indication: HYPERTENSION
  8. NAPROXEN (ALEVE) [Concomitant]
     Indication: PAIN
     Dosage: 1.5 TABS DAILY
     Dates: start: 20110401
  9. LISINOPRIL [Concomitant]
     Indication: HYPERTENSION
  10. FISH OIL [Concomitant]
     Indication: SUPPLEMENTATION THERAPY
  11. GLUCOSAMINE [Concomitant]
     Indication: ARTHRITIS
  12. ASPIRIN [Concomitant]
     Indication: ARTHRALGIA
     Dosage: 1.5 TABS DAILY
     Dates: start: 20110401

REACTIONS (3)
  - HEADACHE [None]
  - DYSPNOEA [None]
  - BRONCHITIS [None]
